FAERS Safety Report 12800719 (Version 1)
Quarter: 2016Q4

REPORT INFORMATION
  Report Type: Spontaneous
  Country: US (occurrence: US)
  Receive Date: 20161001
  Receipt Date: 20161001
  Transmission Date: 20170207
  Serious: Yes (Other)
  Sender: FDA-Public Use
  Company Number: US-TEVA-698072ACC

PATIENT
  Age: 40 Year
  Sex: Female

DRUGS (1)
  1. PARAGARD T 380A [Suspect]
     Active Substance: COPPER
     Route: 065

REACTIONS (10)
  - Haemorrhage [Unknown]
  - Pain [Unknown]
  - Dysuria [Unknown]
  - Cyst [Recovered/Resolved]
  - Ovarian enlargement [Unknown]
  - Pyrexia [Unknown]
  - Pyelonephritis [Unknown]
  - Malaise [Unknown]
  - Hydronephrosis [Unknown]
  - Abdominal pain [Unknown]
